FAERS Safety Report 6101908-1 (Version None)
Quarter: 2009Q1

REPORT INFORMATION
  Report Type: 
  Country: None (occurrence: None)
  Receive Date: 20090304
  Receipt Date: 20090219
  Transmission Date: 20090719
  Serious: Yes (Other)
  Sender: FDA-Public Use
  Company Number: US-PFIZER INC-2009176100

PATIENT
  Sex: Male
  Weight: 81.633 kg

DRUGS (4)
  1. CHANTIX [Suspect]
     Indication: SMOKING CESSATION THERAPY
     Dosage: 1 MG, 2X/DAY
     Dates: start: 20080701, end: 20081101
  2. ALCOHOL [Suspect]
  3. ALBUTEROL [Concomitant]
     Dosage: UNK
  4. ADVAIR HFA [Concomitant]
     Dosage: UNK

REACTIONS (10)
  - ABNORMAL DREAMS [None]
  - BLEPHAROSPASM [None]
  - EYELID PTOSIS [None]
  - FAMILY STRESS [None]
  - HALLUCINATION [None]
  - LEGAL PROBLEM [None]
  - LOSS OF CONSCIOUSNESS [None]
  - MUSCLE TWITCHING [None]
  - MUSCULOSKELETAL DISORDER [None]
  - POSTURE ABNORMAL [None]
